APPROVED DRUG PRODUCT: DIPYRIDAMOLE
Active Ingredient: DIPYRIDAMOLE
Strength: 5MG/ML
Dosage Form/Route: INJECTABLE;INJECTION
Application: A074601 | Product #001
Applicant: HOSPIRA WORLDWIDE, INC
Approved: Dec 19, 1997 | RLD: No | RS: No | Type: DISCN